FAERS Safety Report 26068579 (Version 2)
Quarter: 2025Q4

REPORT INFORMATION
  Report Type: Report from Study
  Country: CA (occurrence: CA)
  Receive Date: 20251120
  Receipt Date: 20251230
  Transmission Date: 20260117
  Serious: Yes (Other)
  Sender: ROCHE
  Company Number: CA-ROCHE-10000257606

PATIENT
  Age: 25 Year
  Sex: Female
  Weight: 71 kg

DRUGS (36)
  1. ACTEMRA [Suspect]
     Active Substance: TOCILIZUMAB
     Indication: Rheumatoid arthritis
     Dosage: UNKNOWN DOSING (RECEIVED OUTSIDE RPAP).
     Route: 042
     Dates: start: 2015, end: 2016
  2. ACTEMRA [Suspect]
     Active Substance: TOCILIZUMAB
     Indication: Arthritis
     Dosage: DRUG DOSE FIRST ADMINISTERED IS 530 MG MILLIGRAM(S)
     Route: 042
     Dates: start: 20160803, end: 20161101
  3. ACTEMRA [Suspect]
     Active Substance: TOCILIZUMAB
     Dosage: DRUG DOSE FIRST ADMINISTERED IS 600 MG MILLIGRAM(S)
     Route: 042
     Dates: start: 20161116, end: 20200831
  4. ACTEMRA [Suspect]
     Active Substance: TOCILIZUMAB
     Dosage: DRUG DOSE FIRST ADMINISTERED IS 600 MG MILLIGRAM(S)
     Route: 042
     Dates: start: 20201029, end: 20210818
  5. ACTEMRA [Suspect]
     Active Substance: TOCILIZUMAB
     Dosage: DRUG DOSE FIRST ADMINISTERED IS 512 MG MILLIGRAM(S)
     Route: 042
     Dates: start: 20211130, end: 20211130
  6. ACTEMRA [Suspect]
     Active Substance: TOCILIZUMAB
     Dosage: DRUG DOSE FIRST ADMINISTERED IS 544 MG MILLIGRAM(S)?MOREDOSAGEINFO IS B3037B02 31-AUG-2023
     Route: 042
     Dates: start: 20220117, end: 20220117
  7. ACTEMRA [Suspect]
     Active Substance: TOCILIZUMAB
     Dosage: DRUG DOSE FIRST ADMINISTERED IS 512 MG MILLIGRAM(S)?MOREDOSAGEINFO IS B5007B04 31-JUL-2024
     Route: 042
     Dates: start: 20220215, end: 20220707
  8. ACTEMRA [Suspect]
     Active Substance: TOCILIZUMAB
     Dosage: DRUG DOSE FIRST ADMINISTERED IS 512 MG MILLIGRAM(S)?MOREDOSAGEINFO IS B5007B14 31-JUL-2023
     Route: 042
     Dates: start: 20221011, end: 20230330
  9. ACTEMRA [Suspect]
     Active Substance: TOCILIZUMAB
     Dosage: DRUG DOSE FIRST ADMINISTERED IS 576 MG MILLIGRAM(S)?MOREDOSAGEINFO IS B5020B30 30-JUN-2025
     Route: 042
     Dates: start: 20230504, end: 20250612
  10. ACTEMRA [Suspect]
     Active Substance: TOCILIZUMAB
     Route: 042
  11. ACTEMRA [Suspect]
     Active Substance: TOCILIZUMAB
     Route: 042
  12. ACTEMRA [Suspect]
     Active Substance: TOCILIZUMAB
     Route: 042
  13. ACTEMRA [Suspect]
     Active Substance: TOCILIZUMAB
     Route: 042
  14. ACTEMRA [Suspect]
     Active Substance: TOCILIZUMAB
     Route: 042
  15. ACTEMRA [Suspect]
     Active Substance: TOCILIZUMAB
     Route: 042
  16. ACTEMRA [Suspect]
     Active Substance: TOCILIZUMAB
     Route: 042
  17. ACTEMRA [Suspect]
     Active Substance: TOCILIZUMAB
     Route: 042
  18. ACTEMRA [Suspect]
     Active Substance: TOCILIZUMAB
     Route: 042
  19. ACTEMRA [Suspect]
     Active Substance: TOCILIZUMAB
     Route: 042
     Dates: start: 20250702, end: 20250702
  20. ACTEMRA [Suspect]
     Active Substance: TOCILIZUMAB
     Route: 042
  21. ACTEMRA [Suspect]
     Active Substance: TOCILIZUMAB
     Route: 042
     Dates: start: 20251111
  22. ACTEMRA [Suspect]
     Active Substance: TOCILIZUMAB
     Route: 042
  23. ACTEMRA [Suspect]
     Active Substance: TOCILIZUMAB
     Route: 042
  24. ACTEMRA [Suspect]
     Active Substance: TOCILIZUMAB
     Route: 042
  25. BENADRYL [Concomitant]
     Active Substance: DIPHENHYDRAMINE HYDROCHLORIDE
     Dosage: DRUG DOSE FIRST ADMINISTERED IS 25 MG MILLIGRAM(S)
     Route: 048
     Dates: start: 20160803, end: 20161004
  26. BENADRYL [Concomitant]
     Active Substance: DIPHENHYDRAMINE HYDROCHLORIDE
     Dosage: DRUG DOSE FIRST ADMINISTERED IS 50 MG MILLIGRAM(S)
     Route: 048
  27. BENADRYL [Concomitant]
     Active Substance: DIPHENHYDRAMINE HYDROCHLORIDE
     Dosage: DRUG DOSE FIRST ADMINISTERED IS 25 MG MILLIGRAM(S)
     Route: 048
  28. CORTISONE [Concomitant]
     Active Substance: CORTISONE
     Indication: Arthritis
  29. FOLIC ACID [Concomitant]
     Active Substance: FOLIC ACID
  30. LANSOPRAZOLE [Concomitant]
     Active Substance: LANSOPRAZOLE
  31. METHACIN [Concomitant]
  32. METHOTREXATE [Concomitant]
     Active Substance: METHOTREXATE
     Indication: Arthritis
  33. OXYCODONE [Concomitant]
     Active Substance: OXYCODONE
     Indication: Pain
  34. PREDNISONE [Concomitant]
     Active Substance: PREDNISONE
  35. TYLENOL [Concomitant]
     Active Substance: ACETAMINOPHEN
     Dosage: DRUG DOSE FIRST ADMINISTERED IS 650 MG MILLIGRAM(S)
     Route: 048
  36. VITAMIN D [Concomitant]
     Active Substance: VITAMIN D NOS

REACTIONS (4)
  - Musculoskeletal disorder [Recovering/Resolving]
  - Weight decreased [Unknown]
  - Dermatitis contact [Recovering/Resolving]
  - Postoperative wound infection [Recovering/Resolving]

NARRATIVE: CASE EVENT DATE: 20250101
